FAERS Safety Report 6103592-X (Version None)
Quarter: 2009Q1

REPORT INFORMATION
  Report Type: 
  Country: None (occurrence: None)
  Receive Date: 20090305
  Receipt Date: 20090219
  Transmission Date: 20090719
  Serious: Yes (Hospitalization, Other)
  Sender: FDA-Public Use
  Company Number: US-BIOGENIDEC-2008BI005519

PATIENT
  Age: 42 Year
  Sex: Female

DRUGS (9)
  1. TYSABRI [Suspect]
     Indication: MULTIPLE SCLEROSIS
     Route: 042
     Dates: start: 20071016
  2. ATIVAN [Concomitant]
     Indication: ANXIETY
  3. DIAZEPAM [Concomitant]
     Indication: ANXIETY
  4. CELEXA [Concomitant]
     Indication: DRUG USE FOR UNKNOWN INDICATION
  5. PREMARIN [Concomitant]
     Indication: DRUG USE FOR UNKNOWN INDICATION
  6. TRAMADOL HCL [Concomitant]
     Indication: DRUG USE FOR UNKNOWN INDICATION
  7. NAPROSYN [Concomitant]
     Indication: DRUG USE FOR UNKNOWN INDICATION
  8. CLONIDINE [Concomitant]
     Indication: HYPERTENSION
  9. LISINOPRIL [Concomitant]
     Indication: HYPERTENSION

REACTIONS (13)
  - AGITATION [None]
  - ANXIETY [None]
  - ASPIRATION [None]
  - BLOOD GLUCOSE ABNORMAL [None]
  - CANDIDA PNEUMONIA [None]
  - CANDIDURIA [None]
  - CHOLECYSTITIS INFECTIVE [None]
  - DRUG WITHDRAWAL CONVULSIONS [None]
  - MALNUTRITION [None]
  - MULTIPLE SCLEROSIS RELAPSE [None]
  - PNEUMONIA STAPHYLOCOCCAL [None]
  - RESPIRATORY FAILURE [None]
  - SEPSIS [None]
